FAERS Safety Report 19635391 (Version 1)
Quarter: 2021Q3

REPORT INFORMATION
  Report Type: Spontaneous
  Country: FR (occurrence: FR)
  Receive Date: 20210730
  Receipt Date: 20210730
  Transmission Date: 20211014
  Serious: Yes (Life-Threatening, Hospitalization, Other)
  Sender: FDA-Public Use
  Company Number: FR-AUROBINDO-AUR-APL-2017-07384

PATIENT
  Age: 60 Year
  Sex: Male

DRUGS (1)
  1. OMEPRAZOLE. [Suspect]
     Active Substance: OMEPRAZOLE
     Indication: GASTRIC ULCER
     Dosage: 40 MILLIGRAM
     Route: 042

REACTIONS (11)
  - Blister [Recovered/Resolved]
  - Asthenia [Unknown]
  - Macule [Unknown]
  - Blindness [Unknown]
  - Corneal lesion [Unknown]
  - Pyrexia [Unknown]
  - Acute respiratory failure [Unknown]
  - Toxic epidermal necrolysis [Recovered/Resolved]
  - Rash [Recovered/Resolved]
  - Conjunctivitis [Unknown]
  - Sepsis [Unknown]
